FAERS Safety Report 4431709-1 (Version None)
Quarter: 2004Q3

REPORT INFORMATION
  Report Type: 
  Country: None (occurrence: None)
  Receive Date: 20040818
  Receipt Date: 20040802
  Transmission Date: 20050211
  Serious: Yes (Hospitalization, Other)
  Sender: FDA-Public Use
  Company Number: USA040874250

PATIENT
  Age: 78 Year
  Sex: Male
  Weight: 105 kg

DRUGS (1)
  1. HUMALOG MIX 75/25 [Suspect]
     Dosage: 57 U DAY
     Dates: start: 20020101, end: 20040701

REACTIONS (1)
  - CHOLELITHIASIS [None]
